FAERS Safety Report 10494777 (Version 1)
Quarter: 2014Q3

REPORT INFORMATION
  Report Type: Spontaneous
  Country: US (occurrence: None)
  Receive Date: 20140815
  Receipt Date: 20140815
  Transmission Date: 20150326
  Serious: Yes (Hospitalization, Other)
  Sender: FDA-Public Use
  Company Number: ADR-2014-00240

PATIENT
  Age: 60 Year
  Sex: Male

DRUGS (2)
  1. BACLOFEN. [Suspect]
     Active Substance: BACLOFEN
     Indication: PAIN
  2. MORPHINE SULFATE. [Suspect]
     Active Substance: MORPHINE SULFATE
     Indication: PAIN

REACTIONS (4)
  - Cerebrospinal fluid leakage [None]
  - Therapeutic response decreased [None]
  - Post lumbar puncture syndrome [None]
  - Implant site extravasation [None]

NARRATIVE: CASE EVENT DATE: 20140109
